FAERS Safety Report 22162305 (Version 1)
Quarter: 2023Q1

REPORT INFORMATION
  Report Type: Spontaneous
  Country: US (occurrence: US)
  Receive Date: 20230331
  Receipt Date: 20230331
  Transmission Date: 20230418
  Serious: Yes (Life-Threatening, Hospitalization, Other)
  Sender: FDA-Public Use
  Company Number: US-drreddys-SPO/USA/23/0163080

PATIENT
  Age: 40 Year
  Sex: Male

DRUGS (14)
  1. DEXAMETHASONE [Suspect]
     Active Substance: DEXAMETHASONE
     Indication: Lower respiratory tract infection viral
     Dosage: TAPER
     Dates: start: 2022, end: 202204
  2. PREDNISONE [Suspect]
     Active Substance: PREDNISONE
     Indication: Organising pneumonia
     Dates: start: 2022, end: 2022
  3. PREDNISONE [Suspect]
     Active Substance: PREDNISONE
     Indication: Bronchopulmonary aspergillosis
  4. REMDESIVIR [Concomitant]
     Active Substance: REMDESIVIR
     Indication: COVID-19
     Route: 042
     Dates: start: 2022
  5. REMDESIVIR [Concomitant]
     Active Substance: REMDESIVIR
     Indication: Lower respiratory tract infection viral
  6. OXYGEN [Concomitant]
     Active Substance: OXYGEN
     Indication: Lower respiratory tract infection viral
     Route: 045
     Dates: start: 2022
  7. OXYGEN [Concomitant]
     Active Substance: OXYGEN
     Dates: start: 202204
  8. OXYGEN [Concomitant]
     Active Substance: OXYGEN
     Route: 045
     Dates: start: 2022
  9. OXYGEN [Concomitant]
     Active Substance: OXYGEN
     Dates: start: 202204
  10. OXYGEN [Concomitant]
     Active Substance: OXYGEN
     Route: 045
     Dates: start: 2022
  11. OXYGEN [Concomitant]
     Active Substance: OXYGEN
     Route: 045
     Dates: start: 2022
  12. OXYGEN [Concomitant]
     Active Substance: OXYGEN
     Route: 045
     Dates: start: 202204
  13. OXYGEN [Concomitant]
     Active Substance: OXYGEN
     Route: 045
     Dates: start: 202204
  14. OXYGEN [Concomitant]
     Active Substance: OXYGEN
     Route: 045
     Dates: start: 2022

REACTIONS (2)
  - COVID-19 pneumonia [Recovered/Resolved]
  - Product use in unapproved indication [Unknown]

NARRATIVE: CASE EVENT DATE: 20220101
